FAERS Safety Report 14919531 (Version 2)
Quarter: 2018Q3

REPORT INFORMATION
  Report Type: Spontaneous
  Country: US (occurrence: US)
  Receive Date: 20180521
  Receipt Date: 20180726
  Transmission Date: 20181010
  Serious: Yes (Other)
  Sender: FDA-Public Use
  Company Number: US-ASTELLAS-2017US045046

PATIENT
  Age: 60 Year
  Sex: Male

DRUGS (1)
  1. XTANDI [Suspect]
     Active Substance: ENZALUTAMIDE
     Indication: PROSTATE CANCER
     Route: 048

REACTIONS (17)
  - Vision blurred [Unknown]
  - Weight decreased [Unknown]
  - Insomnia [Unknown]
  - Somnolence [Unknown]
  - Diarrhoea [Unknown]
  - Chest discomfort [Unknown]
  - Pain in extremity [Unknown]
  - Prostatic specific antigen increased [Unknown]
  - Vomiting [Unknown]
  - Feeling cold [Unknown]
  - Headache [Unknown]
  - Diplopia [Unknown]
  - Malignant neoplasm progression [Unknown]
  - Hot flush [Unknown]
  - Back pain [Unknown]
  - Fatigue [Not Recovered/Not Resolved]
  - Anxiety [Unknown]

NARRATIVE: CASE EVENT DATE: 20171114
